FAERS Safety Report 24731068 (Version 1)
Quarter: 2024Q4

REPORT INFORMATION
  Report Type: Spontaneous
  Country: CN (occurrence: CN)
  Receive Date: 20241213
  Receipt Date: 20241213
  Transmission Date: 20250115
  Serious: Yes (Hospitalization, Other)
  Sender: RANBAXY
  Company Number: CN-SUN PHARMACEUTICAL INDUSTRIES LTD-2024R1-481423

PATIENT
  Age: 40 Year
  Sex: Female

DRUGS (3)
  1. SULFASALAZINE [Suspect]
     Active Substance: SULFASALAZINE
     Indication: Ankylosing spondylitis
     Dosage: 1 GRAM, QD
     Route: 065
  2. SULFASALAZINE [Suspect]
     Active Substance: SULFASALAZINE
     Dosage: 1.5 GRAM, QD
     Route: 065
  3. ETORICOXIB [Concomitant]
     Active Substance: ETORICOXIB
     Indication: Ankylosing spondylitis
     Dosage: 60 MILLIGRAM, OD
     Route: 065

REACTIONS (4)
  - Drug reaction with eosinophilia and systemic symptoms [Unknown]
  - Emotional disorder [Unknown]
  - Mental disorder [Recovering/Resolving]
  - Rash maculo-papular [Recovering/Resolving]
